FAERS Safety Report 19845858 (Version 2)
Quarter: 2021Q4

REPORT INFORMATION
  Report Type: Spontaneous
  Country: DE (occurrence: DE)
  Receive Date: 20210916
  Receipt Date: 20211005
  Transmission Date: 20220303
  Serious: Yes (Death, Hospitalization, Other)
  Sender: FDA-Public Use
  Company Number: DE-GILEAD-2021-0548658

PATIENT
  Age: 59 Year
  Sex: Male
  Weight: 135 kg

DRUGS (7)
  1. ZYDELIG [Suspect]
     Active Substance: IDELALISIB
     Indication: Follicular lymphoma
     Dosage: 150 MG
     Route: 065
     Dates: start: 202104, end: 20210515
  2. COVID-19 VACCINE [Concomitant]
     Dosage: 1 DOSAGE FORM
  3. COVID-19 VACCINE [Concomitant]
     Dosage: 1 DOSAGE FORM
  4. AMPHO-MORONAL [Concomitant]
     Active Substance: AMPHOTERICIN B
  5. ALLOPURINOL [Concomitant]
     Active Substance: ALLOPURINOL
  6. MOMETASONE [Concomitant]
     Active Substance: MOMETASONE
  7. TRIAMCINOLONE ACETONIDE [Concomitant]
     Active Substance: TRIAMCINOLONE ACETONIDE

REACTIONS (12)
  - Multiple organ dysfunction syndrome [Fatal]
  - Pulmonary sepsis [Fatal]
  - Respiratory failure [Fatal]
  - Vascular device infection [Not Recovered/Not Resolved]
  - Clostridium difficile colitis [Unknown]
  - Pancytopenia [Unknown]
  - Erythema multiforme [Not Recovered/Not Resolved]
  - Acute kidney injury [Unknown]
  - Corneal erosion [Recovering/Resolving]
  - Mucosal inflammation [Recovered/Resolved]
  - Conjunctivitis [Unknown]
  - Pseudomonas infection [Not Recovered/Not Resolved]

NARRATIVE: CASE EVENT DATE: 20210501
